FAERS Safety Report 16076820 (Version 1)
Quarter: 2019Q1

REPORT INFORMATION
  Report Type: Report from Study
  Country: US (occurrence: US)
  Receive Date: 20190315
  Receipt Date: 20190315
  Transmission Date: 20190418
  Serious: Yes (Other)
  Sender: FDA-Public Use
  Company Number: US-ROCHE-2280291

PATIENT

DRUGS (4)
  1. TRASTUZUMAB. [Suspect]
     Active Substance: TRASTUZUMAB
     Dosage: MAINTENANCE DOSE
     Route: 042
  2. NELIPEPIMUT-S [Suspect]
     Active Substance: NELIPEPIMUT-S
     Indication: HER-2 POSITIVE BREAST CANCER
     Route: 023
  3. TRASTUZUMAB. [Suspect]
     Active Substance: TRASTUZUMAB
     Indication: HER-2 POSITIVE BREAST CANCER
     Dosage: LOADING DOSE
     Route: 042
  4. SARGRAMOSTIM [Suspect]
     Active Substance: SARGRAMOSTIM
     Indication: HER-2 POSITIVE BREAST CANCER
     Route: 023

REACTIONS (4)
  - Injection site pain [Unknown]
  - Ejection fraction decreased [Unknown]
  - Pruritus [Unknown]
  - Hypertension [Unknown]
